FAERS Safety Report 9794286 (Version 3)
Quarter: 2014Q1

REPORT INFORMATION
  Report Type: Spontaneous
  Country: IT (occurrence: IT)
  Receive Date: 20140102
  Receipt Date: 20140109
  Transmission Date: 20141002
  Serious: Yes (Hospitalization)
  Sender: FDA-Public Use
  Company Number: IT-PFIZER INC-2013368341

PATIENT
  Age: 55 Year
  Sex: Male
  Weight: 80 kg

DRUGS (7)
  1. AMIODARONE HCL [Suspect]
     Indication: ATRIAL FIBRILLATION
     Dosage: 200 MG, DAILY
     Route: 048
     Dates: start: 20131203, end: 20131210
  2. BISOPROLOL FUMARATE [Interacting]
     Indication: CARDIAC FAILURE
     Dosage: 5 MG, DAILY
     Route: 048
     Dates: start: 20130101, end: 20131210
  3. LASIX [Concomitant]
     Indication: CARDIAC FAILURE
     Dosage: 75 MG, UNK
     Route: 048
     Dates: start: 20130101, end: 20131210
  4. UNIPRIL [Concomitant]
     Indication: CARDIAC FAILURE
     Dosage: 10 MG, UNK
     Route: 048
     Dates: start: 20130101, end: 20131210
  5. LUVION [Concomitant]
     Indication: CARDIAC FAILURE
     Dosage: 50 MG, UNK
     Route: 048
     Dates: start: 20130101, end: 20131210
  6. CARDIOASPIRIN [Concomitant]
     Indication: CARDIAC FAILURE
     Dosage: 100 MG, UNK
     Route: 048
     Dates: start: 20130101, end: 20131210
  7. VYTORIN [Concomitant]
     Indication: CARDIAC FAILURE
     Dosage: 1 DF, UNK
     Route: 048
     Dates: start: 20130101, end: 20131210

REACTIONS (3)
  - Drug prescribing error [Recovering/Resolving]
  - Drug interaction [Recovering/Resolving]
  - Bradycardia [Recovering/Resolving]
